FAERS Safety Report 8989985 (Version 2)
Quarter: 2013Q1

REPORT INFORMATION
  Report Type: Report from Study
  Country: JP (occurrence: JP)
  Receive Date: 20121228
  Receipt Date: 20130117
  Transmission Date: 20140127
  Serious: Yes (Other)
  Sender: FDA-Public Use
  Company Number: JP-BAXTER-2012BAX028795

PATIENT
  Age: 78 Year
  Sex: Male
  Weight: 45 kg

DRUGS (17)
  1. FEIBA [Suspect]
     Indication: HAEMOSTASIS
     Route: 042
     Dates: start: 20120511, end: 20120512
  2. FEIBA [Suspect]
     Indication: ACQUIRED HAEMOPHILIA
     Route: 042
     Dates: start: 20120513, end: 20120513
  3. FEIBA [Suspect]
     Route: 042
     Dates: start: 20120514, end: 20120514
  4. FEIBA [Suspect]
     Route: 042
     Dates: start: 20120601, end: 20120602
  5. FEIBA [Suspect]
     Indication: HAEMOSTASIS
     Route: 042
     Dates: start: 20120511, end: 20120512
  6. FEIBA [Suspect]
     Indication: ACQUIRED HAEMOPHILIA
     Route: 042
     Dates: start: 20120513, end: 20120513
  7. FEIBA [Suspect]
     Route: 042
     Dates: start: 20120514, end: 20120514
  8. PREDNISOLONE [Concomitant]
     Indication: FACTOR VIII INHIBITION
     Route: 048
     Dates: start: 20120512, end: 20120612
  9. PREDNISOLONE [Concomitant]
     Route: 048
     Dates: start: 20120613, end: 20120619
  10. PREDNISOLONE [Concomitant]
     Route: 048
     Dates: start: 20120620, end: 20120703
  11. PREDNISOLONE [Concomitant]
     Route: 048
     Dates: start: 20120704, end: 20120711
  12. PREDNISOLONE [Concomitant]
     Route: 048
     Dates: start: 20120712, end: 20120717
  13. PREDNISOLONE [Concomitant]
     Route: 048
     Dates: start: 20120718, end: 20120731
  14. PREDNISOLONE [Concomitant]
     Route: 048
     Dates: start: 20120801, end: 20120807
  15. PREDNISOLONE [Concomitant]
     Route: 048
     Dates: start: 20120808
  16. THROMBIN [Concomitant]
     Indication: GASTRIC HAEMORRHAGE
     Route: 065
     Dates: start: 20120525
  17. TRANSAMIN [Concomitant]
     Indication: GASTRIC HAEMORRHAGE
     Route: 065
     Dates: start: 20120601

REACTIONS (1)
  - Drug ineffective [Unknown]
